FAERS Safety Report 6860252-5 (Version None)
Quarter: 2010Q3

REPORT INFORMATION
  Report Type: 
  Country: None (occurrence: None)
  Receive Date: 20100720
  Receipt Date: 20100707
  Transmission Date: 20110219
  Serious: Yes (Other)
  Sender: FDA-Public Use
  Company Number: PHHY2009CA42077

PATIENT
  Sex: Female

DRUGS (2)
  1. SANDOSTATIN LAR [Suspect]
     Indication: PANCREATIC NEUROENDOCRINE TUMOUR
     Dosage: 40 MG EVERY 4 WEEKS
     Route: 030
     Dates: start: 20090707
  2. SANDOSTATIN LAR [Suspect]
     Dosage: 40 MG EVERY 4 WEEKS
     Route: 030

REACTIONS (5)
  - DECREASED APPETITE [None]
  - DIARRHOEA [None]
  - HEART RATE INCREASED [None]
  - HEPATIC PAIN [None]
  - HYPERTENSION [None]
